FAERS Safety Report 6041966-6 (Version None)
Quarter: 2009Q1

REPORT INFORMATION
  Report Type: 
  Country: None (occurrence: None)
  Receive Date: 20090116
  Receipt Date: 20090106
  Transmission Date: 20090719
  Serious: Yes (Hospitalization, Other)
  Sender: FDA-Public Use
  Company Number: US-PFIZER INC-2005102266

PATIENT
  Sex: Female
  Weight: 68.027 kg

DRUGS (5)
  1. NORVASC [Suspect]
     Indication: HYPERTENSION
     Dosage: 10 MG, 1X/DAY
     Route: 048
     Dates: start: 20030101
  2. HYDROCHLOROTHIAZIDE [Concomitant]
     Route: 065
  3. ESTRACE [Concomitant]
     Route: 065
  4. FEMARA [Concomitant]
  5. ACETYLSALICYLIC ACID [Concomitant]

REACTIONS (3)
  - CEREBROVASCULAR ACCIDENT [None]
  - LIMB DISCOMFORT [None]
  - TRANSIENT ISCHAEMIC ATTACK [None]
